FAERS Safety Report 6598154-4 (Version None)
Quarter: 2010Q1

REPORT INFORMATION
  Report Type: 
  Country: None (occurrence: None)
  Receive Date: 20100224
  Receipt Date: 20050111
  Transmission Date: 20100710
  Serious: No
  Sender: FDA-Public Use
  Company Number: US-ALLERGAN-200410929

PATIENT
  Age: 76 Year
  Sex: Female
  Weight: 65.909 kg

DRUGS (5)
  1. BOTOX [Suspect]
     Indication: TORTICOLLIS
     Dosage: 300UNITS, NA
     Route: 030
     Dates: start: 19920101
  2. BOTOX [Suspect]
     Indication: BLEPHAROSPASM
  3. CLONAZEPAM [Concomitant]
     Indication: NERVOUSNESS
     Dosage: .5MG, QD
     Route: 065
     Dates: start: 19990101
  4. ARTANE [Concomitant]
     Indication: DRUG USE FOR UNKNOWN INDICATION
     Dosage: 2MG, QD
     Route: 048
     Dates: start: 19990101
  5. BENAZEPRIL HYDROCHLORIDE [Concomitant]
     Indication: HYPERTENSION
     Dosage: 20MG, QD
     Route: 065
     Dates: start: 19840101

REACTIONS (4)
  - DYSPHAGIA [None]
  - DYSPHONIA [None]
  - EYE DISCHARGE [None]
  - EYELID PTOSIS [None]
